FAERS Safety Report 13774987 (Version 1)
Quarter: 2017Q3

REPORT INFORMATION
  Report Type: Spontaneous
  Country: US (occurrence: US)
  Receive Date: 20170720
  Receipt Date: 20170720
  Transmission Date: 20171127
  Serious: Yes (Other)
  Sender: FDA-Public Use
  Company Number: US-HQ SPECIALTY-US-2017INT000243

PATIENT
  Age: 20 Year
  Sex: Male

DRUGS (1)
  1. DEXMEDETOMIDINE HYDROCHLORIDE. [Suspect]
     Active Substance: DEXMEDETOMIDINE HYDROCHLORIDE
     Indication: PRODUCT USED FOR UNKNOWN INDICATION
     Dosage: 43 ?G, IN EACH NOSTRIL, REPEATED THREE ADDITIONAL TIMES, WITH 146,343 AND 300 MIN INTERVAL (2 UG/KG)
     Route: 045

REACTIONS (3)
  - Product use in unapproved indication [Unknown]
  - Intestinal pseudo-obstruction [Recovered/Resolved]
  - Product use issue [Unknown]
